FAERS Safety Report 8525638-1 (Version None)
Quarter: 2012Q3

REPORT INFORMATION
  Report Type: 
  Country: None (occurrence: None)
  Receive Date: 20120720
  Receipt Date: 20120710
  Transmission Date: 20120928
  Serious: Yes (Hospitalization, Other)
  Sender: FDA-Public Use
  Company Number: BE-PFIZER INC-2012174801

PATIENT
  Age: 85 Year
  Sex: Female

DRUGS (3)
  1. MIRTAZAPINE [Suspect]
     Indication: DEPRESSION
     Dosage: UNK
  2. VENLAFAXINE HCL [Suspect]
     Indication: DEPRESSION
     Dosage: UNK
  3. MIRTAZAPINE [Suspect]
     Dosage: UNK

REACTIONS (2)
  - URINARY TRACT INFECTION [None]
  - SEROTONIN SYNDROME [None]
